FAERS Safety Report 14848554 (Version 1)
Quarter: 2018Q2

REPORT INFORMATION
  Report Type: Spontaneous
  Country: BR (occurrence: BR)
  Receive Date: 20180504
  Receipt Date: 20180504
  Transmission Date: 20180711
  Serious: Yes (Other)
  Sender: FDA-Public Use
  Company Number: BR-009507513-1804BRA011736

PATIENT
  Age: 57 Year
  Sex: Female
  Weight: 55 kg

DRUGS (9)
  1. VYTORIN [Suspect]
     Active Substance: EZETIMIBE\SIMVASTATIN
     Dosage: 1 DF, TIW (1 TABLET 3 TIMES IN A WEEK)
     Route: 048
  2. LEVOID [Concomitant]
     Active Substance: LEVOTHYROXINE
     Indication: THYROID DISORDER
     Dosage: 1 TABLET PER DAY
     Route: 048
  3. LEXOTAN [Concomitant]
     Active Substance: BROMAZEPAM
     Indication: SLEEP DISORDER
     Dosage: 1 TABLET AT NIGHT
     Route: 048
  4. VYTORIN [Suspect]
     Active Substance: EZETIMIBE\SIMVASTATIN
     Indication: BLOOD CHOLESTEROL INCREASED
     Dosage: 1 DF, BID (1 TABLET IN THE MORNING AND 1 TABLET AFTER MEALS DAILY)
     Route: 048
     Dates: start: 2014
  5. VYTORIN [Suspect]
     Active Substance: EZETIMIBE\SIMVASTATIN
     Dosage: 1 DF, EVERY OTHER DAY
     Route: 048
  6. PLAQUINOL [Concomitant]
     Active Substance: HYDROXYCHLOROQUINE SULFATE
     Indication: SYSTEMIC LUPUS ERYTHEMATOSUS
     Dosage: PRN IN VARIED DOSES
     Route: 048
     Dates: start: 1997
  7. SIMVASTATIN. [Suspect]
     Active Substance: SIMVASTATIN
     Indication: BLOOD CHOLESTEROL INCREASED
     Dosage: UNK
     Route: 048
  8. VYTORIN [Suspect]
     Active Substance: EZETIMIBE\SIMVASTATIN
     Dosage: 1 DF, BIW (1 TABLET ON MONDAY AND 1 TABLET ON THURSDAY)
     Route: 048
  9. PLAQUINOL [Concomitant]
     Active Substance: HYDROXYCHLOROQUINE SULFATE
     Dosage: 1 TABLET PER DAY
     Route: 048

REACTIONS (3)
  - Emotional disorder [Not Recovered/Not Resolved]
  - Systemic lupus erythematosus [Unknown]
  - Product physical issue [Unknown]

NARRATIVE: CASE EVENT DATE: 201801
